FAERS Safety Report 5972573-9 (Version None)
Quarter: 2008Q4

REPORT INFORMATION
  Report Type: 
  Country: None (occurrence: None)
  Receive Date: 20081125
  Receipt Date: 20081110
  Transmission Date: 20090506
  Serious: No
  Sender: FDA-Public Use
  Company Number: C-08-0069

PATIENT
  Age: 68 Year
  Sex: Male
  Weight: 90.7194 kg

DRUGS (2)
  1. LINDANE [Suspect]
     Indication: ARTHROPOD INFESTATION
     Dosage: ONE APPLICATION/TOPICAL
     Route: 061
     Dates: start: 20080101
  2. IBUPROFEN TABLETS [Concomitant]

REACTIONS (7)
  - BLISTER [None]
  - DRUG INEFFECTIVE FOR UNAPPROVED INDICATION [None]
  - HEADACHE [None]
  - PAIN OF SKIN [None]
  - PARAESTHESIA [None]
  - PARAPSORIASIS [None]
  - PRURITUS [None]
